FAERS Safety Report 14690774 (Version 1)
Quarter: 2018Q1

REPORT INFORMATION
  Report Type: Spontaneous
  Country: US (occurrence: US)
  Receive Date: 20180328
  Receipt Date: 20180328
  Transmission Date: 20180509
  Serious: Yes (Other)
  Sender: FDA-Public Use
  Company Number: US-BAYER-2018-054411

PATIENT
  Age: 68 Year
  Sex: Male

DRUGS (3)
  1. BAYER ASPIRIN [Suspect]
     Active Substance: ASPIRIN
     Indication: PYREXIA
     Dosage: UNK
     Route: 048
     Dates: end: 2016
  2. BAYER LOW DOSE [Suspect]
     Active Substance: ASPIRIN
     Indication: ISCHAEMIC HEART DISEASE PROPHYLAXIS
     Dosage: UNK, QD
     Route: 048
  3. BAYER ASPIRIN [Suspect]
     Active Substance: ASPIRIN
     Indication: HEADACHE
     Route: 048

REACTIONS (5)
  - Tinnitus [Not Recovered/Not Resolved]
  - Drug administered to patient of inappropriate age [Unknown]
  - Therapeutic response unexpected [Recovered/Resolved]
  - Hypoaesthesia [Recovered/Resolved]
  - Bone marrow failure [Not Recovered/Not Resolved]

NARRATIVE: CASE EVENT DATE: 2016
